FAERS Safety Report 16203120 (Version 1)
Quarter: 2019Q2

REPORT INFORMATION
  Report Type: Spontaneous
  Country: US (occurrence: US)
  Receive Date: 20190416
  Receipt Date: 20190416
  Transmission Date: 20190711
  Serious: Yes (Death)
  Sender: FDA-Public Use
  Company Number: US-MYLANLABS-2019M1035392

PATIENT
  Age: 8 Decade
  Sex: Male

DRUGS (1)
  1. PREDNISONE. [Suspect]
     Active Substance: PREDNISONE
     Indication: CHRONIC OBSTRUCTIVE PULMONARY DISEASE
     Route: 065

REACTIONS (6)
  - Pneumonia [Fatal]
  - Septic shock [Fatal]
  - Nocardiosis [Fatal]
  - Burkholderia cepacia complex infection [Fatal]
  - Cardiac arrest [Fatal]
  - Acute respiratory failure [Fatal]
